FAERS Safety Report 4758744-8 (Version None)
Quarter: 2005Q3

REPORT INFORMATION
  Report Type: 
  Country: None (occurrence: None)
  Receive Date: 20050831
  Receipt Date: 20050831
  Transmission Date: 20060218
  Serious: Yes (Hospitalization)
  Sender: FDA-Public Use
  Company Number: None

PATIENT
  Age: 6 Year
  Sex: Male
  Weight: 21.7727 kg

DRUGS (1)
  1. CLONAZEPAM [Suspect]
     Indication: AGGRESSION
     Dosage: ONE DOSE ORAL
     Route: 048
     Dates: start: 20050805

REACTIONS (4)
  - ACCOMMODATION DISORDER [None]
  - AGGRESSION [None]
  - MYDRIASIS [None]
  - WRONG DRUG ADMINISTERED [None]
